FAERS Safety Report 25907501 (Version 1)
Quarter: 2025Q4

REPORT INFORMATION
  Report Type: Spontaneous
  Country: EU (occurrence: EU)
  Receive Date: 20251010
  Receipt Date: 20251010
  Transmission Date: 20260117
  Serious: Yes (Other)
  Sender: PFIZER
  Company Number: None

PATIENT
  Age: 86 Year
  Sex: Female

DRUGS (2)
  1. AZITHROMYCIN [Suspect]
     Active Substance: AZITHROMYCIN
     Dosage: 500 MG, DAILY (EVERY 24 HOURS)
     Route: 048
     Dates: start: 20250121, end: 20250124
  2. CEFTRIAXONE [Suspect]
     Active Substance: CEFTRIAXONE
     Indication: Respiratory tract infection
     Dosage: 2 G, DAILY (EVERY 24 HOURS)
     Route: 042
     Dates: start: 20250120, end: 20250121

REACTIONS (1)
  - Hyperbilirubinaemia [Recovered/Resolved]

NARRATIVE: CASE EVENT DATE: 20250121
